FAERS Safety Report 11098757 (Version 2)
Quarter: 2015Q2

REPORT INFORMATION
  Report Type: Spontaneous
  Country: NL (occurrence: NL)
  Receive Date: 20150507
  Receipt Date: 20150512
  Transmission Date: 20150821
  Serious: Yes (Other)
  Sender: FDA-Public Use
  Company Number: PHHY2015NL055231

PATIENT
  Sex: Female

DRUGS (2)
  1. METHOTREXATE [Suspect]
     Active Substance: METHOTREXATE
     Indication: STEM CELL TRANSPLANT
     Dosage: UNK
     Route: 065
     Dates: start: 20110525
  2. CICLOSPORIN [Suspect]
     Active Substance: CYCLOSPORINE
     Indication: STEM CELL TRANSPLANT
     Dosage: UNK
     Route: 065
     Dates: start: 20110525

REACTIONS (9)
  - Chronic graft versus host disease [Unknown]
  - Herpes zoster [Unknown]
  - Radiculitis [Unknown]
  - Scleroderma [Unknown]
  - Graft versus host disease in skin [Unknown]
  - Febrile neutropenia [Unknown]
  - Myosclerosis [Unknown]
  - Mucosal inflammation [Unknown]
  - Osteosclerosis [Unknown]
